FAERS Safety Report 18622050 (Version 1)
Quarter: 2020Q4

REPORT INFORMATION
  Report Type: Spontaneous
  Country: TH (occurrence: TH)
  Receive Date: 20201216
  Receipt Date: 20201216
  Transmission Date: 20210114
  Serious: Yes (Other)
  Sender: FDA-Public Use
  Company Number: TH-SUN PHARMACEUTICAL INDUSTRIES LTD-2020R1-271416

PATIENT
  Age: 52 Year
  Sex: Male

DRUGS (1)
  1. METFORMIN [Suspect]
     Active Substance: METFORMIN HYDROCHLORIDE
     Indication: TYPE 2 DIABETES MELLITUS
     Dosage: 2550 MILLIGRAM, DAILY
     Route: 065

REACTIONS (4)
  - Vitamin B12 deficiency [Recovering/Resolving]
  - Pancytopenia [Recovering/Resolving]
  - Myocardial infarction [Unknown]
  - Folate deficiency [Recovering/Resolving]
